FAERS Safety Report 10843162 (Version 1)
Quarter: 2015Q1

REPORT INFORMATION
  Report Type: Report from Study
  Country: US (occurrence: US)
  Receive Date: 20150220
  Receipt Date: 20150220
  Transmission Date: 20150721
  Serious: No
  Sender: FDA-Public Use
  Company Number: US-ABBVIE-14P-163-1273428-00

PATIENT
  Age: 50 Year
  Sex: Female

DRUGS (2)
  1. ASACOL [Concomitant]
     Active Substance: MESALAMINE
     Indication: CROHN^S DISEASE
  2. HUMIRA [Suspect]
     Active Substance: ADALIMUMAB
     Indication: CROHN^S DISEASE
     Dates: start: 20140417, end: 201406

REACTIONS (3)
  - Malaise [Recovering/Resolving]
  - Fatigue [Recovered/Resolved]
  - Presyncope [Recovering/Resolving]

NARRATIVE: CASE EVENT DATE: 2014
